FAERS Safety Report 13342943 (Version 1)
Quarter: 2017Q1

REPORT INFORMATION
  Report Type: Spontaneous
  Country: CA (occurrence: CA)
  Receive Date: 20170316
  Receipt Date: 20170316
  Transmission Date: 20170428
  Serious: Yes (Hospitalization, Disabling, Other)
  Sender: FDA-Public Use
  Company Number: CA-PFIZER INC-2017111495

PATIENT
  Age: 7 Year
  Sex: Male
  Weight: 21 kg

DRUGS (7)
  1. MELPHALAN [Suspect]
     Active Substance: MELPHALAN
     Dosage: 65 MG, UNK
     Route: 042
  2. VINCRISTINE SULFATE. [Suspect]
     Active Substance: VINCRISTINE SULFATE
     Dosage: 0.54 MG, UNK
     Route: 042
  3. CARBOPLATIN. [Suspect]
     Active Substance: CARBOPLATIN
     Dosage: 400 MG, UNK
     Route: 042
  4. ETOPOSIDE. [Suspect]
     Active Substance: ETOPOSIDE
     Indication: NEUROBLASTOMA
     Dosage: 180 MG, UNK
     Route: 042
  5. CYCLOPHOSPHAMIDE. [Concomitant]
     Active Substance: CYCLOPHOSPHAMIDE
     Route: 042
  6. CISPLATIN. [Suspect]
     Active Substance: CISPLATIN
     Dosage: 45 MG, UNK
     Route: 042
  7. DINUTUXIMAB [Suspect]
     Active Substance: DINUTUXIMAB
     Dosage: 23 MG, UNK
     Route: 042

REACTIONS (7)
  - Gait disturbance [Unknown]
  - Pain in jaw [Unknown]
  - Tendon injury [Unknown]
  - Pain in extremity [Unknown]
  - Neuralgia [Unknown]
  - Neuropathy peripheral [Unknown]
  - Hyporeflexia [Unknown]
